FAERS Safety Report 8590648-5 (Version None)
Quarter: 2012Q3

REPORT INFORMATION
  Report Type: 
  Country: None (occurrence: None)
  Receive Date: 20120813
  Receipt Date: 20120807
  Transmission Date: 20120928
  Serious: No
  Sender: FDA-Public Use
  Company Number: US-PFIZER INC-2012192394

PATIENT
  Age: 19 Year
  Sex: Female
  Weight: 59.41 kg

DRUGS (3)
  1. RELPAX [Suspect]
     Indication: MIGRAINE
     Dosage: 40 MG, 1X/DAY
     Route: 048
     Dates: start: 20120807, end: 20120807
  2. EXCEDRIN (MIGRAINE) [Concomitant]
     Indication: MIGRAINE
     Dosage: UNK
  3. PROPRANOLOL [Concomitant]
     Indication: MIGRAINE
     Dosage: UNK

REACTIONS (2)
  - HYPOAESTHESIA [None]
  - FEELING ABNORMAL [None]
